FAERS Safety Report 6887180-3 (Version None)
Quarter: 2010Q3

REPORT INFORMATION
  Report Type: 
  Country: None (occurrence: None)
  Receive Date: 20100730
  Receipt Date: 20100723
  Transmission Date: 20110219
  Serious: Yes (Death)
  Sender: FDA-Public Use
  Company Number: DK-PFIZER INC-2010092218

PATIENT
  Age: 71 Year
  Sex: Male

DRUGS (11)
  1. NORVASC [Suspect]
     Dosage: 5 MG, 1X/DAY
     Route: 048
  2. METHYLPREDNISOLONE [Suspect]
     Dosage: 40 MG, UNK
     Dates: start: 20030212, end: 20030212
  3. DIFLUCAN [Suspect]
     Dosage: 50 MG, 1X/DAY
  4. HYCAMTIN [Suspect]
     Indication: SMALL CELL LUNG CANCER STAGE UNSPECIFIED
     Dosage: 3.6 MG, 1X/DAY
     Route: 042
     Dates: start: 20030130, end: 20030201
  5. TETANUS VACCINE [Suspect]
     Dates: start: 20030211, end: 20030211
  6. INDAPAMIDE [Suspect]
     Dosage: 2.5 MG, 1X/DAY
     Route: 048
  7. FORTUM [Suspect]
     Dosage: 6 G, 1X/DAY
     Dates: start: 20030211
  8. DIAZEPAM [Suspect]
     Dosage: 10 MG, UNK
     Route: 042
     Dates: start: 20030212
  9. ENALAPRIL [Suspect]
     Dosage: 20 MG, 1X/DAY
  10. PLATINOL [Suspect]
     Dosage: 90 MG, UNK
     Route: 042
     Dates: start: 20030201, end: 20030201
  11. BISOPROLOL [Suspect]
     Dosage: 10 MG, 1X/DAY

REACTIONS (6)
  - CONVULSION [None]
  - DECREASED APPETITE [None]
  - FALL [None]
  - NAUSEA [None]
  - PYREXIA [None]
  - THROMBOCYTOPENIA [None]
